FAERS Safety Report 4348501-9 (Version None)
Quarter: 2004Q2

REPORT INFORMATION
  Report Type: 
  Country: None (occurrence: None)
  Receive Date: 20040423
  Receipt Date: 20040416
  Transmission Date: 20050107
  Serious: Yes (Other)
  Sender: FDA-Public Use
  Company Number: 200411610BCC

PATIENT
  Age: 76 Year
  Sex: Female
  Weight: 72.5755 kg

DRUGS (11)
  1. ASPIRIN [Suspect]
     Indication: MYOCARDIAL INFARCTION
     Dosage: 324 MG, QID, ORAL
     Route: 048
     Dates: start: 20031101, end: 20040302
  2. ASPIRIN [Suspect]
     Indication: PROPHYLAXIS
     Dosage: 324 MG, QID, ORAL
     Route: 048
     Dates: start: 20031101, end: 20040302
  3. ASPIRIN [Suspect]
     Indication: MYOCARDIAL INFARCTION
     Dosage: 162 MG, BID, ORAL
     Route: 048
     Dates: start: 20040302
  4. ASPIRIN [Suspect]
     Indication: PROPHYLAXIS
     Dosage: 162 MG, BID, ORAL
     Route: 048
     Dates: start: 20040302
  5. SEREVENT [Concomitant]
  6. ALBUTEROL [Concomitant]
  7. VASOTEC [Concomitant]
  8. TOPROL-XL [Concomitant]
  9. LANOXIN [Concomitant]
  10. LUMIGAN [Concomitant]
  11. ATIVAN [Concomitant]

REACTIONS (1)
  - HYPOACUSIS [None]
